FAERS Safety Report 25287264 (Version 1)
Quarter: 2025Q2

REPORT INFORMATION
  Report Type: Spontaneous
  Country: US (occurrence: None)
  Receive Date: 20250508
  Receipt Date: 20250508
  Transmission Date: 20250717
  Serious: Yes (unspecified)
  Sender: FDA-CTU
  Company Number: None

PATIENT
  Age: 61 Year
  Sex: Female

DRUGS (3)
  1. PLAQUENIL [Suspect]
     Active Substance: HYDROXYCHLOROQUINE SULFATE
     Dosage: FREQUENCY : DAILY;?
  2. OZEMPIC [Suspect]
     Active Substance: SEMAGLUTIDE
  3. ACTEMRA [Suspect]
     Active Substance: TOCILIZUMAB

REACTIONS (10)
  - Inflammation [None]
  - C-reactive protein increased [None]
  - Bone marrow disorder [None]
  - Nausea [None]
  - Glucose tolerance impaired [None]
  - Toxicity to various agents [None]
  - Drug ineffective [None]
  - Product use issue [None]
  - Therapy interrupted [None]
  - Immobile [None]
